FAERS Safety Report 14115003 (Version 1)
Quarter: 2017Q4

REPORT INFORMATION
  Report Type: Spontaneous
  Country: CA (occurrence: CA)
  Receive Date: 20171023
  Receipt Date: 20171023
  Transmission Date: 20180321
  Serious: Yes (Other)
  Sender: FDA-Public Use
  Company Number: CA-PFIZER INC-2017452043

PATIENT
  Age: 51 Year
  Sex: Female
  Weight: 63.49 kg

DRUGS (13)
  1. HYDROMORPH CONTIN [Concomitant]
     Active Substance: HYDROMORPHONE
     Indication: PAIN
     Dosage: 6 MG, 2X/DAY
  2. ATIVAN [Concomitant]
     Active Substance: LORAZEPAM
     Indication: SLEEP DISORDER
     Dosage: 1 MG, UNK
  3. NASONEX [Concomitant]
     Active Substance: MOMETASONE FUROATE
     Indication: SINUSITIS
     Dosage: 50 UG ONE SPRAY BOTH NOSTRILS EVERY DAY
     Dates: start: 2012
  4. LYRICA [Suspect]
     Active Substance: PREGABALIN
     Indication: NEURALGIA
     Dosage: 75 MG, DAILY
  5. DILAUDID [Concomitant]
     Active Substance: HYDROMORPHONE HYDROCHLORIDE
     Indication: HEADACHE
  6. ZOLOFT [Concomitant]
     Active Substance: SERTRALINE HYDROCHLORIDE
     Indication: DEPRESSION
     Dosage: 50 MG, 2X/DAY
     Dates: start: 2017
  7. LYRICA [Suspect]
     Active Substance: PREGABALIN
     Dosage: 450 MG (SIX 75 MG CAPSULES), DAILY
  8. LOPROX [Concomitant]
     Active Substance: CICLOPIROX\CICLOPIROX OLAMINE
     Indication: PSORIASIS
     Dosage: 50 2X/DAY MORNING AND NIGHT
     Dates: start: 2007
  9. DILAUDID [Concomitant]
     Active Substance: HYDROMORPHONE HYDROCHLORIDE
     Indication: FACIAL PAIN
     Dosage: 2 MG EVERY 4 HOURS AS NEEDED (SWITCHES BETWEEN MORPHINE AND DILAUDID)
  10. DESONIDE. [Concomitant]
     Active Substance: DESONIDE
     Indication: PSORIASIS
     Dosage: 50 UNK, 2X/DAY MORNING AND NIGHT
     Dates: start: 2007
  11. SYNTHROID [Concomitant]
     Active Substance: LEVOTHYROXINE SODIUM
     Indication: THYROID DISORDER
     Dosage: 0.05 MG, 1X/DAY AT NIGHT
     Dates: start: 2017
  12. ATIVAN [Concomitant]
     Active Substance: LORAZEPAM
     Dosage: 2 MG, 1X/DAY AT NIGHT
     Dates: start: 2015
  13. MORPHINE [Concomitant]
     Active Substance: MORPHINE
     Dosage: SWITCHES BETWEEN MORPHINE AND DILAUDID

REACTIONS (24)
  - Facial bones fracture [Recovering/Resolving]
  - Madarosis [Not Recovered/Not Resolved]
  - Bursitis [Unknown]
  - Fall [Unknown]
  - Decreased appetite [Not Recovered/Not Resolved]
  - Dysarthria [Unknown]
  - Dry mouth [Not Recovered/Not Resolved]
  - Feeling cold [Not Recovered/Not Resolved]
  - Sleep apnoea syndrome [Unknown]
  - Psoriasis [Recovering/Resolving]
  - Alopecia [Not Recovered/Not Resolved]
  - Hypohidrosis [Not Recovered/Not Resolved]
  - Aphasia [Not Recovered/Not Resolved]
  - Balance disorder [Not Recovered/Not Resolved]
  - Iron deficiency [Not Recovered/Not Resolved]
  - Resting tremor [Not Recovered/Not Resolved]
  - Insomnia [Unknown]
  - Loss of consciousness [Recovering/Resolving]
  - Muscle spasms [Unknown]
  - Head titubation [Not Recovered/Not Resolved]
  - Neuralgia [Not Recovered/Not Resolved]
  - Fractured coccyx [Recovering/Resolving]
  - Malaise [Unknown]
  - Hypothyroidism [Not Recovered/Not Resolved]

NARRATIVE: CASE EVENT DATE: 2007
